FAERS Safety Report 17556381 (Version 5)
Quarter: 2020Q3

REPORT INFORMATION
  Report Type: Spontaneous
  Country: US (occurrence: US)
  Receive Date: 20200318
  Receipt Date: 20200910
  Transmission Date: 20201102
  Serious: No
  Sender: FDA-Public Use
  Company Number: US-SA-2020SA068174

PATIENT

DRUGS (2)
  1. DUPIXENT [Suspect]
     Active Substance: DUPILUMAB
     Dosage: 300 MG, QOW
     Route: 058
     Dates: start: 2020
  2. DUPIXENT [Suspect]
     Active Substance: DUPILUMAB
     Indication: DERMATITIS ATOPIC
     Dosage: 300 MG, QOW
     Route: 058
     Dates: start: 20200110, end: 202003

REACTIONS (8)
  - Eye pain [Not Recovered/Not Resolved]
  - Suspected COVID-19 [Unknown]
  - Therapeutic response decreased [Unknown]
  - Hypoaesthesia [Unknown]
  - Illness [Unknown]
  - Arthralgia [Unknown]
  - Pain in extremity [Unknown]
  - Back disorder [Unknown]

NARRATIVE: CASE EVENT DATE: 2020
